FAERS Safety Report 9014313 (Version 1)
Quarter: 2013Q1

REPORT INFORMATION
  Report Type: Spontaneous
  Country: US (occurrence: US)
  Receive Date: 20130115
  Receipt Date: 20130115
  Transmission Date: 20140127
  Serious: Yes (Life-Threatening, Other)
  Sender: FDA-Public Use
  Company Number: US-009507513-1007USA03879

PATIENT
  Age: 39 Year
  Sex: Female
  Weight: 74.84 kg

DRUGS (2)
  1. SINGULAIR [Suspect]
     Indication: ASTHMA
     Dosage: 10 MG, QD
     Route: 048
     Dates: start: 20091001, end: 20091018
  2. SINGULAIR [Suspect]
     Indication: TOTAL LUNG CAPACITY DECREASED

REACTIONS (11)
  - Decreased appetite [Unknown]
  - Fear [Unknown]
  - Influenza [Unknown]
  - Psychomotor hyperactivity [Unknown]
  - Mental disorder [Unknown]
  - Mood swings [Unknown]
  - Muscle spasms [Unknown]
  - Palpitations [Unknown]
  - Diarrhoea [Unknown]
  - Paraesthesia [Unknown]
  - Insomnia [Unknown]
